FAERS Safety Report 24640363 (Version 6)
Quarter: 2025Q3

REPORT INFORMATION
  Report Type: Spontaneous
  Country: EU (occurrence: EU)
  Receive Date: 20241120
  Receipt Date: 20250723
  Transmission Date: 20251021
  Serious: Yes (Death, Other)
  Sender: AUROBINDO
  Company Number: EU-BRISTOL-MYERS SQUIBB COMPANY-2024-166911

PATIENT
  Age: 59 Year
  Sex: Female

DRUGS (14)
  1. AZACITIDINE [Suspect]
     Active Substance: AZACITIDINE
     Indication: Glioblastoma
     Route: 065
     Dates: start: 202202
  2. AZACITIDINE [Suspect]
     Active Substance: AZACITIDINE
     Indication: Acute myeloid leukaemia
  3. PROCARBAZINE [Suspect]
     Active Substance: PROCARBAZINE
     Indication: Glioblastoma
     Route: 065
     Dates: start: 201905, end: 201908
  4. LOMUSTINE [Suspect]
     Active Substance: LOMUSTINE
     Indication: Glioblastoma
     Route: 065
     Dates: start: 201905
  5. TEMOZOLOMIDE [Suspect]
     Active Substance: TEMOZOLOMIDE
     Indication: Glioblastoma
     Route: 065
     Dates: start: 201812, end: 201902
  6. TEMOZOLOMIDE [Suspect]
     Active Substance: TEMOZOLOMIDE
     Route: 065
     Dates: start: 201903, end: 201905
  7. LEVOTHYROXINE SODIUM [Concomitant]
     Active Substance: LEVOTHYROXINE SODIUM
     Indication: Goitre
     Route: 065
  8. LEVOTHYROXINE SODIUM [Concomitant]
     Active Substance: LEVOTHYROXINE SODIUM
     Indication: Immune-mediated hypothyroidism
  9. LEVOTHYROXINE SODIUM [Concomitant]
     Active Substance: LEVOTHYROXINE SODIUM
     Indication: Graves^ disease
  10. APIXABAN [Concomitant]
     Active Substance: APIXABAN
     Indication: Product used for unknown indication
     Route: 065
     Dates: start: 2019
  11. PANTOPRAZOLE [Concomitant]
     Active Substance: PANTOPRAZOLE
     Indication: Product used for unknown indication
     Route: 065
  12. DEXAMETHASONE [Concomitant]
     Active Substance: DEXAMETHASONE
     Indication: Product used for unknown indication
     Route: 065
  13. SERTRALINE [Concomitant]
     Active Substance: SERTRALINE HYDROCHLORIDE
     Indication: Product used for unknown indication
     Route: 065
  14. ONDANSETRON [Concomitant]
     Active Substance: ONDANSETRON
     Indication: Prophylaxis of nausea and vomiting
     Route: 065
     Dates: start: 201905

REACTIONS (12)
  - Acute myeloid leukaemia [Fatal]
  - Karyotype analysis abnormal [Fatal]
  - TP53 gene mutation [Fatal]
  - Thrombocytopenia [Fatal]
  - Cerebral haemorrhage [Fatal]
  - Infection [Fatal]
  - Injection site reaction [Fatal]
  - Gastrointestinal disorder [Fatal]
  - Myelosuppression [Fatal]
  - Motor dysfunction [Fatal]
  - Drug ineffective [Fatal]
  - Haematotoxicity [Unknown]

NARRATIVE: CASE EVENT DATE: 20220101
